FAERS Safety Report 8890074 (Version 1)
Quarter: 2012Q4

REPORT INFORMATION
  Report Type: Spontaneous
  Country: US (occurrence: None)
  Receive Date: 20121105
  Receipt Date: 20121105
  Transmission Date: 20130627
  Serious: No
  Sender: FDA-Public Use
  Company Number: None

PATIENT
  Age: 51 Year
  Sex: Female
  Weight: 54.43 kg

DRUGS (1)
  1. NAPROXEN [Suspect]
     Dosage: 1 tablet 2 times daily
     Dates: start: 20121009, end: 20121028

REACTIONS (2)
  - Urticaria [None]
  - Pruritus [None]
